FAERS Safety Report 23374826 (Version 1)
Quarter: 2024Q1

REPORT INFORMATION
  Report Type: Spontaneous
  Country: TR (occurrence: TR)
  Receive Date: 20240106
  Receipt Date: 20240106
  Transmission Date: 20240410
  Serious: Yes (Other)
  Sender: FDA-Public Use
  Company Number: TR-002147023-NVSC2023TR277660

PATIENT
  Sex: Male

DRUGS (1)
  1. EXELON [Suspect]
     Active Substance: RIVASTIGMINE TARTRATE
     Indication: Dementia Alzheimer^s type
     Dosage: UNK (15, TRANSDERMAL FLASTER)
     Route: 062

REACTIONS (4)
  - Dementia Alzheimer^s type [Unknown]
  - Feeling abnormal [Unknown]
  - Product supply issue [Unknown]
  - Product dose omission issue [Unknown]
